FAERS Safety Report 20412046 (Version 1)
Quarter: 2022Q1

REPORT INFORMATION
  Report Type: Spontaneous
  Country: US (occurrence: US)
  Receive Date: 20220201
  Receipt Date: 20220201
  Transmission Date: 20220424
  Serious: No
  Sender: FDA-Public Use
  Company Number: US-ABBVIE-21K-163-4134661-00

PATIENT
  Sex: Male

DRUGS (6)
  1. LUPRON DEPOT [Suspect]
     Active Substance: LEUPROLIDE ACETATE
     Indication: Prostate cancer
     Route: 065
  2. XTANDI [Suspect]
     Active Substance: ENZALUTAMIDE
     Indication: Prostate cancer
     Dosage: 4 40MG CAPSULES ONCE A DAY
     Route: 048
     Dates: start: 20191205
  3. XTANDI [Suspect]
     Active Substance: ENZALUTAMIDE
     Dosage: 4 40MG CAPSULES ONCE A DAY
     Route: 048
  4. XTANDI [Suspect]
     Active Substance: ENZALUTAMIDE
     Route: 048
  5. XTANDI [Suspect]
     Active Substance: ENZALUTAMIDE
     Dosage: 4 40MG CAPSULES ONCE A DAY
     Route: 048
  6. XTANDI [Suspect]
     Active Substance: ENZALUTAMIDE
     Dosage: ONCE DAILY
     Route: 048

REACTIONS (6)
  - Liver disorder [Unknown]
  - Illness [Unknown]
  - Inappropriate schedule of product administration [Unknown]
  - Off label use [Unknown]
  - Prostatic specific antigen increased [Recovering/Resolving]
  - Fatigue [Unknown]

NARRATIVE: CASE EVENT DATE: 20170101
